FAERS Safety Report 19675709 (Version 1)
Quarter: 2021Q3

REPORT INFORMATION
  Report Type: Spontaneous
  Country: FR (occurrence: FR)
  Receive Date: 20210809
  Receipt Date: 20210809
  Transmission Date: 20211014
  Serious: Yes (Disabling)
  Sender: FDA-Public Use
  Company Number: FR-TEVA-2021-FR-1939501

PATIENT
  Age: 26 Year
  Sex: Male
  Weight: 80 kg

DRUGS (3)
  1. MACROGOL BIOGARAN 10 G, POUDRE POUR SOLUTION BUVABLE EN SACHET?DOSE [Concomitant]
     Active Substance: POLYETHYLENE GLYCOL 4000
     Dosage: SACHET?DOSE
  2. LAMOTRIGINE TEVA 25 MG, COMPRIME DISPERSIBLE OU A CROQUER [Suspect]
     Active Substance: LAMOTRIGINE
     Indication: BIPOLAR DISORDER
     Dosage: 25 MILLIGRAM DAILY; 1 TABLET PER DAYTHERAPY END DATE:ASKU
     Route: 048
     Dates: start: 20210704
  3. DEPAKOTE [Concomitant]
     Active Substance: DIVALPROEX SODIUM

REACTIONS (4)
  - Headache [Recovered/Resolved]
  - Irritability [Recovered/Resolved]
  - Nightmare [Recovered/Resolved]
  - Aggression [Recovered/Resolved]

NARRATIVE: CASE EVENT DATE: 20210704
